FAERS Safety Report 7318573-8 (Version None)
Quarter: 2011Q1

REPORT INFORMATION
  Report Type: 
  Country: None (occurrence: None)
  Receive Date: 20110228
  Receipt Date: 20110218
  Transmission Date: 20110831
  Serious: Yes (Hospitalization, Other)
  Sender: FDA-Public Use
  Company Number: BR-US-EMD SERONO, INC.-7043234

PATIENT
  Sex: Female

DRUGS (2)
  1. REBIF [Suspect]
     Indication: MULTIPLE SCLEROSIS
     Dates: start: 20070701
  2. CORTISONE [Suspect]

REACTIONS (4)
  - GAIT DISTURBANCE [None]
  - MUSCULAR WEAKNESS [None]
  - TYPE 2 DIABETES MELLITUS [None]
  - SOMNOLENCE [None]
